FAERS Safety Report 23819196 (Version 2)
Quarter: 2024Q3

REPORT INFORMATION
  Report Type: Report from Study
  Country: US (occurrence: US)
  Receive Date: 20240506
  Receipt Date: 20240708
  Transmission Date: 20241016
  Serious: No
  Sender: ACADIA PHARMACEUTICALS
  Company Number: US-ACADIA PHARMACEUTICALS INC.-ACA-2024-PIM-001792

PATIENT
  Sex: Male

DRUGS (23)
  1. NUPLAZID [Suspect]
     Active Substance: PIMAVANSERIN TARTRATE
     Indication: Parkinson^s disease
     Dosage: 10 MILLIGRAM, QD
     Route: 048
  2. NUPLAZID [Suspect]
     Active Substance: PIMAVANSERIN TARTRATE
     Indication: Parkinson^s disease
     Dosage: 34 MILLIGRAM, QD
     Route: 048
  3. NUPLAZID [Suspect]
     Active Substance: PIMAVANSERIN TARTRATE
     Indication: Dyskinesia
  4. SEROQUEL [Concomitant]
     Active Substance: QUETIAPINE FUMARATE
  5. METOPROLOL [Concomitant]
     Active Substance: METOPROLOL
  6. PRADAXA [Concomitant]
     Active Substance: DABIGATRAN ETEXILATE MESYLATE
  7. RIVASTIGMINE [Concomitant]
     Active Substance: RIVASTIGMINE
  8. METFORMIN [Concomitant]
     Active Substance: METFORMIN HYDROCHLORIDE
  9. VITAMIN D3 [Concomitant]
     Active Substance: CHOLECALCIFEROL
  10. DUOPA [Concomitant]
     Active Substance: CARBIDOPA\LEVODOPA
  11. LANTUS [Concomitant]
     Active Substance: INSULIN GLARGINE
  12. VITAMIN B12 [Concomitant]
     Active Substance: CYANOCOBALAMIN
  13. FARXIGA [Concomitant]
     Active Substance: DAPAGLIFLOZIN PROPANEDIOL
  14. SCOPOLAMINE [Concomitant]
     Active Substance: SCOPOLAMINE
  15. NAMENDA [Concomitant]
     Active Substance: MEMANTINE HYDROCHLORIDE
  16. CALTRATE [Concomitant]
     Active Substance: CALCIUM CARBONATE
  17. LIPITOR [Concomitant]
     Active Substance: ATORVASTATIN CALCIUM
  18. MAGNESIUM [Concomitant]
     Active Substance: MAGNESIUM
  19. FENOFIBRATE [Concomitant]
     Active Substance: FENOFIBRATE
  20. SERTRALINE [Concomitant]
     Active Substance: SERTRALINE HYDROCHLORIDE
  21. AZILECT [Concomitant]
     Active Substance: RASAGILINE MESYLATE
  22. VITAMINS [Concomitant]
     Active Substance: VITAMINS
  23. POTASSIUM [Concomitant]
     Active Substance: POTASSIUM

REACTIONS (2)
  - Malaise [Unknown]
  - Hallucination [Unknown]
